FAERS Safety Report 11163638 (Version 4)
Quarter: 2017Q4

REPORT INFORMATION
  Report Type: Report from Study
  Country: US (occurrence: US)
  Receive Date: 20150604
  Receipt Date: 20171230
  Transmission Date: 20180320
  Serious: Yes (Other)
  Sender: FDA-Public Use
  Company Number: US-ROCHE-1544046

PATIENT
  Age: 18 Year
  Sex: Male

DRUGS (11)
  1. NUTROPIN AQ [Suspect]
     Active Substance: SOMATROPIN
     Indication: GROWTH HORMONE DEFICIENCY
     Dosage: NUSPIN 20?FOR GROWTH HORMONE DEFICIENCY
     Route: 058
     Dates: start: 20150805
  2. NUTROPIN AQ [Suspect]
     Active Substance: SOMATROPIN
     Dosage: FOR SHORT STATURE
     Route: 058
     Dates: start: 20130411
  3. CORTEF [Concomitant]
     Active Substance: HYDROCORTISONE
  4. NUTROPIN AQ [Suspect]
     Active Substance: SOMATROPIN
     Indication: BODY HEIGHT BELOW NORMAL
     Dosage: NUSPIN 20
     Route: 058
     Dates: end: 201502
  5. TESTOSTERONE CYPIONATE. [Suspect]
     Active Substance: TESTOSTERONE CYPIONATE
     Indication: BODY HEIGHT BELOW NORMAL
     Route: 030
     Dates: start: 20141030
  6. PREDNISONE. [Concomitant]
     Active Substance: PREDNISONE
  7. ERGOCALCIFEROL. [Concomitant]
     Active Substance: ERGOCALCIFEROL
  8. CREON [Concomitant]
     Active Substance: PANCRELIPASE AMYLASE\PANCRELIPASE LIPASE\PANCRELIPASE PROTEASE
  9. CLARITIN (UNITED STATES) [Concomitant]
  10. REMERON [Concomitant]
     Active Substance: MIRTAZAPINE
  11. BENADRYL [Concomitant]
     Active Substance: DIPHENHYDRAMINE HYDROCHLORIDE

REACTIONS (12)
  - Hepatic mass [Not Recovered/Not Resolved]
  - Aspartate aminotransferase increased [Unknown]
  - Gastric neoplasm [Unknown]
  - Off label use [Unknown]
  - Blood alkaline phosphatase increased [Unknown]
  - Headache [Unknown]
  - Muscle spasms [Unknown]
  - Blood testosterone decreased [Unknown]
  - Blood creatinine decreased [Unknown]
  - Helicobacter infection [Unknown]
  - Back pain [Unknown]
  - Gynaecomastia [Unknown]

NARRATIVE: CASE EVENT DATE: 20141218
